FAERS Safety Report 10340555 (Version 4)
Quarter: 2015Q1

REPORT INFORMATION
  Report Type: Spontaneous
  Country: US (occurrence: US)
  Receive Date: 20140724
  Receipt Date: 20150120
  Transmission Date: 20150720
  Serious: Yes (Life-Threatening, Hospitalization, Disabling, Congenital Anomaly, Other)
  Sender: FDA-Public Use
  Company Number: US-GLAXOSMITHKLINE-A1080872A

PATIENT
  Age: 0 Day
  Sex: Female

DRUGS (2)
  1. WELLBUTRIN SR [Suspect]
     Active Substance: BUPROPION HYDROCHLORIDE
     Indication: DEPRESSION
     Dosage: 150 MG, BID
     Route: 064
  2. WELLBUTRIN [Suspect]
     Active Substance: BUPROPION HYDROCHLORIDE
     Indication: DEPRESSION
     Dosage: UNK, U
     Route: 064
     Dates: start: 19970506

REACTIONS (14)
  - Patent ductus arteriosus [Unknown]
  - Cardiac failure congestive [Unknown]
  - Abdominal wall disorder [Unknown]
  - Exomphalos [Unknown]
  - Arnold-Chiari malformation [Unknown]
  - Cardiac malposition [Unknown]
  - Foetal exposure during pregnancy [Unknown]
  - Ventricular septal defect [Unknown]
  - Atrial septal defect [Unknown]
  - Pulmonary valve stenosis [Unknown]
  - Vision blurred [Unknown]
  - Cardiomegaly [Unknown]
  - Heart disease congenital [Unknown]
  - Arrhythmia [Unknown]

NARRATIVE: CASE EVENT DATE: 19980514
